FAERS Safety Report 8618627-X (Version None)
Quarter: 2012Q3

REPORT INFORMATION
  Report Type: 
  Country: None (occurrence: None)
  Receive Date: 20120814
  Receipt Date: 20120814
  Transmission Date: 20120928
  Serious: Yes (Other)
  Sender: FDA-Public Use
  Company Number: None

PATIENT
  Age: 63 Year
  Sex: Male
  Weight: 146.9654 kg

DRUGS (1)
  1. BECLOMETHASONE DIPROPIONATE [Suspect]
     Indication: CHRONIC SINUSITIS
     Dosage: 80 MCG PER SPRAY, 4 TIMES DAILY, NASAL
     Route: 045
     Dates: start: 20120709, end: 20120715

REACTIONS (4)
  - SINUS DISORDER [None]
  - SINUS HEADACHE [None]
  - INFLAMMATION [None]
  - INSOMNIA [None]
